FAERS Safety Report 22181359 (Version 1)
Quarter: 2023Q2

REPORT INFORMATION
  Report Type: Report from Study
  Country: US (occurrence: US)
  Receive Date: 20230406
  Receipt Date: 20230406
  Transmission Date: 20230722
  Serious: Yes (Other)
  Sender: FDA-Public Use
  Company Number: US-ABBVIE-4709712

PATIENT
  Sex: Female

DRUGS (1)
  1. VENCLEXTA [Suspect]
     Active Substance: VENETOCLAX
     Indication: Plasma cell myeloma
     Route: 048
     Dates: start: 202209

REACTIONS (9)
  - Discomfort [Unknown]
  - Glomerular filtration rate abnormal [Unknown]
  - Drug intolerance [Recovering/Resolving]
  - Impaired gastric emptying [Unknown]
  - Cytogenetic analysis abnormal [Unknown]
  - Blood disorder [Unknown]
  - Gastrooesophageal reflux disease [Unknown]
  - Blood immunoglobulin G increased [Unknown]
  - Light chain analysis increased [Unknown]
